FAERS Safety Report 25656876 (Version 3)
Quarter: 2025Q4

REPORT INFORMATION
  Report Type: Report from Study
  Country: US (occurrence: US)
  Receive Date: 20250807
  Receipt Date: 20251014
  Transmission Date: 20260118
  Serious: Yes (Other)
  Sender: MALLINCKRODT
  Company Number: US-MALLINCKRODT-MNK202504686

PATIENT
  Sex: Female

DRUGS (1)
  1. CORTICOTROPIN [Suspect]
     Active Substance: CORTICOTROPIN
     Indication: Iridocyclitis
     Dosage: UNKNOWN

REACTIONS (11)
  - Diabetes mellitus [Not Recovered/Not Resolved]
  - Blood pressure increased [Recovering/Resolving]
  - Dyspnoea [Unknown]
  - Bone pain [Unknown]
  - Muscle spasms [Unknown]
  - Pain [Unknown]
  - Blood potassium decreased [Unknown]
  - Insomnia [Unknown]
  - Depression [Unknown]
  - Mood swings [Unknown]
  - Osteoporosis [Unknown]
